FAERS Safety Report 5457995-7 (Version None)
Quarter: 2007Q3

REPORT INFORMATION
  Report Type: 
  Country: None (occurrence: None)
  Receive Date: 20070917
  Receipt Date: 20070912
  Transmission Date: 20080115
  Serious: Yes (Death, Life-Threatening)
  Sender: FDA-Public Use
  Company Number: 200706AGG00651

PATIENT
  Age: 80 Year
  Sex: Female

DRUGS (4)
  1. TIROFIBAN HYDROCHLORIDE (TIROFIBAN HCL) [Suspect]
     Indication: ANGINA UNSTABLE
     Dosage: (INTRAVENOUS (NOT OTHERWISE SPECIFIED))
     Route: 042
  2. ASPIRIN [Concomitant]
  3. CLOPIDOGREL BISULFATE [Concomitant]
  4. HEPARIN [Concomitant]

REACTIONS (1)
  - MYOCARDIAL INFARCTION [None]
